FAERS Safety Report 13708569 (Version 2)
Quarter: 2017Q3

REPORT INFORMATION
  Report Type: Spontaneous
  Country: CH (occurrence: CH)
  Receive Date: 20170630
  Receipt Date: 20170725
  Transmission Date: 20171127
  Serious: Yes (Hospitalization, Other)
  Sender: FDA-Public Use
  Company Number: CH-ALLERGAN-1727020US

PATIENT
  Age: 22 Year
  Sex: Female

DRUGS (6)
  1. STANOZOLOL [Suspect]
     Active Substance: STANOZOLOL
     Indication: HYPERTONIA
  2. CLENBUTEROL [Suspect]
     Active Substance: CLENBUTEROL
     Indication: HYPERTONIA
  3. LIOTHYRONINE SODIUM;LEVOTHYROXINE SODIUM UNK [Suspect]
     Active Substance: LEVOTHYROXINE SODIUM\LIOTHYRONINE SODIUM
     Indication: HYPERTONIA
  4. ANASTROZOLE. [Suspect]
     Active Substance: ANASTROZOLE
     Indication: HYPERTONIA
  5. ALDACTONE [Suspect]
     Active Substance: SPIRONOLACTONE
     Indication: HYPERTONIA
  6. TORASEMIDE [Suspect]
     Active Substance: TORSEMIDE
     Indication: HYPERTONIA

REACTIONS (6)
  - Tachycardia [Unknown]
  - Acute respiratory distress syndrome [Recovered/Resolved]
  - Myocarditis [Recovered/Resolved]
  - Intentional product misuse [Unknown]
  - Hyperthyroidism [Recovered/Resolved]
  - Pneumonia [Recovered/Resolved]
